FAERS Safety Report 22680306 (Version 4)
Quarter: 2023Q4

REPORT INFORMATION
  Report Type: Report from Study
  Country: RO (occurrence: RO)
  Receive Date: 20230707
  Receipt Date: 20231005
  Transmission Date: 20240109
  Serious: Yes (Other)
  Sender: FDA-Public Use
  Company Number: RO-ROCHE-3348888

PATIENT
  Age: 74 Year
  Sex: Female
  Weight: 66 kg

DRUGS (9)
  1. BEVACIZUMAB [Suspect]
     Active Substance: BEVACIZUMAB
     Indication: Hepatocellular carcinoma
     Dosage: 800 MILLIGRAM
     Route: 065
     Dates: start: 20230329
  2. ATEZOLIZUMAB [Suspect]
     Active Substance: ATEZOLIZUMAB
     Indication: Hepatocellular carcinoma
     Dosage: 1200 MILLIGRAM, Q3WK
     Route: 042
     Dates: start: 20230329
  3. NORVASC [Concomitant]
     Active Substance: AMLODIPINE BESYLATE
     Dosage: 5 MILLIGRAM, QD
  4. BISOPROLOL FUMARATE [Concomitant]
     Active Substance: BISOPROLOL FUMARATE
     Dosage: 5 MILLIGRAM, QD
  5. INDAPAMIDE\PERINDOPRIL [Concomitant]
     Active Substance: INDAPAMIDE\PERINDOPRIL
     Dosage: 5 MILLIGRAM, QD
  6. URSODIOL [Concomitant]
     Active Substance: URSODIOL
     Dosage: UNK
     Dates: start: 20230621, end: 20230823
  7. PHOSPHOLIPID [Concomitant]
     Active Substance: PHOSPHOLIPID
     Dosage: UNK
  8. ESSENTIALE MAX [Concomitant]
     Dosage: UNK
     Dates: start: 20230621, end: 20230823
  9. ARGININE-SORBITOL [Concomitant]
     Dosage: UNK
     Dates: start: 20230823, end: 20230823

REACTIONS (3)
  - Liver injury [Not Recovered/Not Resolved]
  - Hand dermatitis [Recovered/Resolved]
  - Prurigo [Recovering/Resolving]

NARRATIVE: CASE EVENT DATE: 20230416
